FAERS Safety Report 13687864 (Version 1)
Quarter: 2017Q2

REPORT INFORMATION
  Report Type: Spontaneous
  Country: NO (occurrence: NO)
  Receive Date: 20170626
  Receipt Date: 20170626
  Transmission Date: 20170830
  Serious: Yes (Life-Threatening)
  Sender: FDA-Public Use
  Company Number: NO-ROCHE-1955053

PATIENT
  Age: 24 Year
  Sex: Male

DRUGS (6)
  1. BACTRIM [Concomitant]
     Active Substance: SULFAMETHOXAZOLE\TRIMETHOPRIM
     Indication: PROPHYLAXIS
     Route: 048
     Dates: start: 201502
  2. MABTHERA [Suspect]
     Active Substance: RITUXIMAB
     Indication: IDIOPATHIC INTERSTITIAL PNEUMONIA
     Route: 041
     Dates: start: 20170510, end: 20170510
  3. CIPROXIN [Concomitant]
     Active Substance: CIPROFLOXACIN
     Indication: UPPER RESPIRATORY TRACT INFECTION
     Route: 048
     Dates: start: 201705
  4. CALCIGRAN FORTE [Concomitant]
     Indication: PROPHYLAXIS
     Route: 048
  5. PREDNISOLON [Concomitant]
     Active Substance: PREDNISOLONE
     Indication: IDIOPATHIC INTERSTITIAL PNEUMONIA
     Route: 048
     Dates: start: 201701
  6. SOMAC [Concomitant]
     Active Substance: PANTOPRAZOLE SODIUM
     Indication: DYSPEPSIA
     Route: 048

REACTIONS (1)
  - Myocarditis [Not Recovered/Not Resolved]
